FAERS Safety Report 9449100 (Version 2)
Quarter: 2013Q3

REPORT INFORMATION
  Report Type: Spontaneous
  Country: JP (occurrence: JP)
  Receive Date: 20130808
  Receipt Date: 20130903
  Transmission Date: 20140515
  Serious: Yes (Hospitalization, Other)
  Sender: FDA-Public Use
  Company Number: PHHY2013JP084408

PATIENT
  Age: 43 Year
  Sex: Female

DRUGS (2)
  1. SLOW K [Suspect]
     Dosage: 18000 MG, UNK (30 TABLETS)
     Route: 048
  2. PURSENNID [Suspect]
     Dosage: UNK

REACTIONS (5)
  - Intentional overdose [Recovered/Resolved with Sequelae]
  - Blood potassium increased [Recovered/Resolved with Sequelae]
  - Suicide attempt [Unknown]
  - Loss of consciousness [Unknown]
  - Acidosis [Unknown]
